FAERS Safety Report 20632788 (Version 1)
Quarter: 2022Q1

REPORT INFORMATION
  Report Type: Spontaneous
  Country: US (occurrence: US)
  Receive Date: 20220324
  Receipt Date: 20220324
  Transmission Date: 20220424
  Serious: Yes (Other)
  Sender: FDA-Public Use
  Company Number: US-GLAXOSMITHKLINE-US2022GSK053426

PATIENT
  Sex: Male

DRUGS (2)
  1. ZANTAC [Suspect]
     Active Substance: RANITIDINE HYDROCHLORIDE
     Indication: Dyspepsia
     Dosage: OCCASIONAL|AS NEEDED|OVER THE COUNTER
     Route: 065
     Dates: start: 200001, end: 200603
  2. ZANTAC [Suspect]
     Active Substance: RANITIDINE HYDROCHLORIDE
     Indication: Dyspepsia
     Dosage: OCCASIONAL|AS NEEDED|OVER THE COUNTER
     Route: 065
     Dates: start: 200001, end: 200603

REACTIONS (2)
  - Bladder cancer [Unknown]
  - Prostate cancer [Unknown]
